FAERS Safety Report 9476526 (Version 1)
Quarter: 2013Q3

REPORT INFORMATION
  Report Type: Spontaneous
  Country: US (occurrence: US)
  Receive Date: 20130826
  Receipt Date: 20130826
  Transmission Date: 20140515
  Serious: Yes (Life-Threatening, Other)
  Sender: FDA-Public Use
  Company Number: US-ROXANE LABORATORIES, INC.-2013-RO-01407RO

PATIENT
  Age: 62 Year
  Sex: Female

DRUGS (3)
  1. ZOLPIDEM [Suspect]
     Indication: INSOMNIA
     Dosage: 10 MG
  2. ZOLPIDEM [Suspect]
  3. PAROXETINE [Suspect]
     Indication: ANXIETY
     Dosage: 10 MG

REACTIONS (5)
  - Suicide attempt [Unknown]
  - Aggression [Unknown]
  - Delirium [Unknown]
  - Depression [Unknown]
  - Dissociative disorder [Unknown]
